FAERS Safety Report 16663908 (Version 6)
Quarter: 2020Q4

REPORT INFORMATION
  Report Type: Spontaneous
  Country: BR (occurrence: BR)
  Receive Date: 20190802
  Receipt Date: 20201023
  Transmission Date: 20210113
  Serious: Yes (Other)
  Sender: FDA-Public Use
  Company Number: BR-GLAXOSMITHKLINE-BR2017GSK041563

PATIENT
  Age: 50 Year
  Sex: Female
  Weight: 52 kg

DRUGS (4)
  1. BENLYSTA [Suspect]
     Active Substance: BELIMUMAB
     Indication: SYSTEMIC LUPUS ERYTHEMATOSUS
     Dosage: UNK UNK, Z EACH BOTTLE OF 400MG AND 120MG
     Dates: start: 20170306
  2. SUNSCREEN SPF 60 [Concomitant]
     Indication: PRODUCT USED FOR UNKNOWN INDICATION
     Dosage: UNK
  3. PREDNISONE. [Concomitant]
     Active Substance: PREDNISONE
     Indication: PRODUCT USED FOR UNKNOWN INDICATION
     Dosage: UNK
  4. METHOTREXATE. [Concomitant]
     Active Substance: METHOTREXATE
     Indication: PRODUCT USED FOR UNKNOWN INDICATION
     Dosage: 8 DF(TABLET), UNK

REACTIONS (16)
  - Nasal disorder [Unknown]
  - Product dose omission issue [Recovered/Resolved]
  - Product availability issue [Unknown]
  - Systemic lupus erythematosus [Unknown]
  - Pain in extremity [Unknown]
  - Sneezing [Unknown]
  - Dry skin [Unknown]
  - Catarrh [Unknown]
  - Circumstance or information capable of leading to medication error [Recovered/Resolved]
  - Diarrhoea [Recovered/Resolved]
  - Fatigue [Unknown]
  - Influenza [Unknown]
  - Skin wrinkling [Unknown]
  - Inappropriate schedule of product administration [Recovered/Resolved]
  - Premature ageing [Not Recovered/Not Resolved]
  - Musculoskeletal stiffness [Unknown]

NARRATIVE: CASE EVENT DATE: 20170501
